FAERS Safety Report 5861741-2 (Version None)
Quarter: 2008Q3

REPORT INFORMATION
  Report Type: 
  Country: None (occurrence: None)
  Receive Date: 20080827
  Receipt Date: 20080711
  Transmission Date: 20090109
  Serious: No
  Sender: FDA-Public Use
  Company Number: US-ABBOTT-08P-163-0462241-00

PATIENT
  Sex: Male
  Weight: 152.09 kg

DRUGS (5)
  1. NIASPAN [Suspect]
     Indication: BLOOD CHOLESTEROL INCREASED
     Route: 048
     Dates: start: 20080601
  2. LISINOPRIL [Concomitant]
     Indication: BLOOD PRESSURE
     Route: 048
  3. ROSUVASTATIN [Concomitant]
     Indication: BLOOD CHOLESTEROL
     Route: 048
  4. PIOGLITAZONE [Concomitant]
     Indication: DIABETES MELLITUS
     Route: 048
  5. UNKNOWN [Concomitant]
     Indication: MYALGIA
     Route: 048
     Dates: start: 20080601

REACTIONS (1)
  - FEELING HOT [None]
